FAERS Safety Report 7776297-7 (Version None)
Quarter: 2011Q3

REPORT INFORMATION
  Report Type: 
  Country: None (occurrence: None)
  Receive Date: 20110926
  Receipt Date: 20110913
  Transmission Date: 20111222
  Serious: Yes (Other)
  Sender: FDA-Public Use
  Company Number: US-JNJFOC-20110906203

PATIENT
  Sex: Female

DRUGS (44)
  1. ORENCIA [Suspect]
     Route: 042
     Dates: start: 20081021
  2. ORENCIA [Suspect]
     Route: 042
     Dates: start: 20090210
  3. ORENCIA [Suspect]
     Route: 042
     Dates: start: 20090511
  4. ORENCIA [Suspect]
     Route: 042
     Dates: start: 20090902
  5. ORENCIA [Suspect]
     Route: 042
     Dates: start: 20091027
  6. ORENCIA [Suspect]
     Route: 042
     Dates: start: 20100120
  7. CALCIUM CARBONATE [Concomitant]
     Route: 065
  8. ORENCIA [Suspect]
     Route: 042
     Dates: start: 20061121
  9. ORENCIA [Suspect]
     Route: 042
     Dates: start: 20080406
  10. ORENCIA [Suspect]
     Route: 042
     Dates: start: 20080506
  11. ORENCIA [Suspect]
     Route: 042
     Dates: start: 20080826
  12. ORENCIA [Suspect]
     Route: 042
     Dates: start: 20091222
  13. ORENCIA [Suspect]
     Route: 042
     Dates: start: 20100217
  14. FOLIC ACID [Concomitant]
     Route: 065
  15. ACTONEL [Concomitant]
     Route: 065
  16. ZOLOFT [Concomitant]
     Route: 065
  17. REMICADE [Suspect]
     Indication: RHEUMATOID ARTHRITIS
     Route: 042
  18. ORENCIA [Suspect]
     Route: 042
     Dates: start: 20080610
  19. ORENCIA [Suspect]
     Route: 042
     Dates: start: 20081118
  20. ORENCIA [Suspect]
     Route: 042
     Dates: start: 20090610
  21. PREVACID [Concomitant]
     Route: 065
  22. CLONAZEPAM [Concomitant]
     Route: 065
  23. DESYREL [Concomitant]
     Route: 065
  24. ORENCIA [Suspect]
     Indication: RHEUMATOID ARTHRITIS
     Route: 042
     Dates: start: 20100414
  25. ORENCIA [Suspect]
     Route: 042
     Dates: start: 20110217
  26. ORENCIA [Suspect]
     Route: 042
     Dates: start: 20080311
  27. ORENCIA [Suspect]
     Route: 042
     Dates: start: 20080630
  28. ORENCIA [Suspect]
     Route: 042
     Dates: start: 20090113
  29. ORENCIA [Suspect]
     Route: 042
     Dates: start: 20090930
  30. METHOTREXATE [Concomitant]
     Route: 065
  31. STATEX [Concomitant]
     Route: 065
  32. ORENCIA [Suspect]
     Route: 042
     Dates: start: 20070605
  33. ORENCIA [Suspect]
     Route: 042
     Dates: start: 20080729
  34. ORENCIA [Suspect]
     Route: 042
     Dates: start: 20080922
  35. ORENCIA [Suspect]
     Route: 042
     Dates: start: 20090310
  36. ORENCIA [Suspect]
     Route: 042
     Dates: start: 20090805
  37. ORENCIA [Suspect]
     Route: 042
     Dates: start: 20091124
  38. NAPROSYN [Concomitant]
     Route: 065
  39. VITAMIN D [Concomitant]
     Route: 065
  40. ORENCIA [Suspect]
     Route: 042
     Dates: start: 20070731
  41. ORENCIA [Suspect]
     Route: 042
     Dates: start: 20070925
  42. ORENCIA [Suspect]
     Route: 042
     Dates: start: 20081216
  43. ORENCIA [Suspect]
     Route: 042
     Dates: start: 20090708
  44. FENTANYL [Concomitant]
     Route: 065

REACTIONS (6)
  - DRUG HYPERSENSITIVITY [None]
  - PRURITUS [None]
  - DENTAL CARIES [None]
  - ERYTHEMA [None]
  - RASH [None]
  - UTERINE CARCINOMA IN SITU [None]
